FAERS Safety Report 10224909 (Version 1)
Quarter: 2014Q2

REPORT INFORMATION
  Report Type: Spontaneous
  Country: US (occurrence: US)
  Receive Date: 20140609
  Receipt Date: 20140609
  Transmission Date: 20141212
  Serious: Yes (Death)
  Sender: FDA-Public Use
  Company Number: US-GLAXOSMITHKLINE-B1001702A

PATIENT
  Sex: 0

DRUGS (4)
  1. EPOPROSTENOL [Suspect]
     Indication: PULMONARY ARTERIAL HYPERTENSION
     Route: 064
  2. HEPARIN [Suspect]
     Indication: PULMONARY ARTERIAL HYPERTENSION
     Dosage: 15U3 TWICE PER DAY
     Route: 064
  3. NIFEDIPINE [Suspect]
     Indication: PULMONARY ARTERIAL HYPERTENSION
     Route: 064
  4. SILDENAFIL [Suspect]
     Indication: PULMONARY ARTERIAL HYPERTENSION
     Route: 064

REACTIONS (1)
  - Sudden infant death syndrome [Fatal]
